FAERS Safety Report 20503735 (Version 1)
Quarter: 2022Q1

REPORT INFORMATION
  Report Type: Spontaneous
  Country: US (occurrence: None)
  Receive Date: 20220221
  Receipt Date: 20220221
  Transmission Date: 20220423
  Serious: Yes (Other)
  Sender: FDA-Public Use
  Company Number: None

PATIENT
  Age: 82 Year
  Sex: Male
  Weight: 58.23 kg

DRUGS (1)
  1. SOTROVIMAB [Suspect]
     Active Substance: SOTROVIMAB
     Indication: COVID-19
     Dates: start: 20220126, end: 20220126

REACTIONS (9)
  - Agitation [None]
  - Confusional state [None]
  - Restlessness [None]
  - Paranoia [None]
  - Delirium [None]
  - Abnormal behaviour [None]
  - Memory impairment [None]
  - Confusional state [None]
  - Infusion related reaction [None]

NARRATIVE: CASE EVENT DATE: 20220126
